FAERS Safety Report 4749998-2 (Version None)
Quarter: 2005Q3

REPORT INFORMATION
  Report Type: 
  Country: None (occurrence: None)
  Receive Date: 20050822
  Receipt Date: 20050303
  Transmission Date: 20060218
  Serious: Yes (Disabling)
  Sender: FDA-Public Use
  Company Number: US-MERCK-0503USA00867

PATIENT
  Age: 53 Year
  Sex: Female
  Weight: 68 kg

DRUGS (8)
  1. VIOXX [Suspect]
     Indication: OSTEOARTHRITIS
     Route: 048
     Dates: start: 19991020, end: 20041004
  2. VIOXX [Suspect]
     Route: 048
  3. VIOXX [Suspect]
     Indication: BACK PAIN
     Route: 048
     Dates: start: 19991020, end: 20041004
  4. VIOXX [Suspect]
     Route: 048
  5. LIPITOR [Concomitant]
     Indication: BLOOD CHOLESTEROL INCREASED
     Route: 065
  6. HYDROCHLOROTHIAZIDE [Concomitant]
     Indication: HYPERTENSION
     Route: 065
  7. PRINIVIL [Concomitant]
     Indication: HYPERTENSION
     Route: 048
  8. PREMARIN [Concomitant]
     Route: 065

REACTIONS (23)
  - ABDOMINAL PAIN [None]
  - ALLERGIC SINUSITIS [None]
  - ASTHENIA [None]
  - BACK PAIN [None]
  - BLOOD POTASSIUM DECREASED [None]
  - CEREBROVASCULAR ACCIDENT [None]
  - CONSTIPATION [None]
  - CORONARY ARTERY DISEASE [None]
  - DIZZINESS [None]
  - ECZEMA [None]
  - FATIGUE [None]
  - GROIN PAIN [None]
  - HYPERTENSION [None]
  - INSOMNIA [None]
  - JOINT SPRAIN [None]
  - LACUNAR INFARCTION [None]
  - LIMB DISCOMFORT [None]
  - MENOPAUSAL SYMPTOMS [None]
  - PAIN IN EXTREMITY [None]
  - PELVIC PAIN [None]
  - SOMNOLENCE [None]
  - UPPER RESPIRATORY TRACT INFECTION [None]
  - VARICOSE VEIN [None]
